FAERS Safety Report 21171360 (Version 1)
Quarter: 2022Q3

REPORT INFORMATION
  Report Type: Spontaneous
  Country: US (occurrence: US)
  Receive Date: 20220804
  Receipt Date: 20220804
  Transmission Date: 20221026
  Serious: Yes (Life-Threatening, Hospitalization, Other)
  Sender: FDA-Public Use
  Company Number: US-BRISTOL-MYERS SQUIBB COMPANY-2022-082182

PATIENT
  Age: 80 Year
  Sex: Male

DRUGS (3)
  1. ELIQUIS [Suspect]
     Active Substance: APIXABAN
     Indication: Product used for unknown indication
     Route: 065
  2. TYVASO [Suspect]
     Active Substance: TREPROSTINIL
     Indication: Pulmonary arterial hypertension
     Dosage: USING 4 AMPULES PER DAY INSTEAD OF 1 AMPULE PER DAY.?PRESCRIBED 13 BREATHS INHALED, FOUR TIMES A DAY
     Route: 055
     Dates: start: 20200904
  3. TYVASO [Suspect]
     Active Substance: TREPROSTINIL
     Route: 055

REACTIONS (5)
  - Cardiac arrest [Unknown]
  - Myocardial infarction [Unknown]
  - Epistaxis [Not Recovered/Not Resolved]
  - Renal failure [Unknown]
  - Aspiration [Unknown]

NARRATIVE: CASE EVENT DATE: 20220601
